FAERS Safety Report 12118053 (Version 5)
Quarter: 2016Q2

REPORT INFORMATION
  Report Type: Spontaneous
  Country: US (occurrence: US)
  Receive Date: 20160226
  Receipt Date: 20160525
  Transmission Date: 20160815
  Serious: Yes (Other)
  Sender: FDA-Public Use
  Company Number: US-009507513-1602USA001939

PATIENT
  Age: 27 Year
  Sex: Female
  Weight: 83.45 kg

DRUGS (2)
  1. NEXPLANON [Suspect]
     Active Substance: ETONOGESTREL
     Dosage: UNK
  2. NEXPLANON [Suspect]
     Active Substance: ETONOGESTREL
     Indication: CONTRACEPTION
     Dosage: 68 MG / THREE YEARS; UPPER LEFT ARM
     Route: 059
     Dates: start: 20160202

REACTIONS (5)
  - Device difficult to use [Recovered/Resolved]
  - Product quality issue [Unknown]
  - Haemorrhage [Unknown]
  - Needle issue [Unknown]
  - Contusion [Unknown]

NARRATIVE: CASE EVENT DATE: 20160202
